FAERS Safety Report 16367584 (Version 2)
Quarter: 2019Q3

REPORT INFORMATION
  Report Type: Spontaneous
  Country: US (occurrence: US)
  Receive Date: 20190529
  Receipt Date: 20190709
  Transmission Date: 20191004
  Serious: No
  Sender: FDA-Public Use
  Company Number: US-PFIZER INC-2019225359

PATIENT
  Age: 59 Year
  Sex: Male

DRUGS (1)
  1. ADVIL LIQUI-GELS [Suspect]
     Active Substance: IBUPROFEN
     Dosage: 200 MG, UNK
     Route: 048

REACTIONS (3)
  - Dysgeusia [Unknown]
  - Poor quality product administered [Unknown]
  - Product taste abnormal [Unknown]
